FAERS Safety Report 4889035-2 (Version None)
Quarter: 2005Q4

REPORT INFORMATION
  Report Type: 
  Country: None (occurrence: None)
  Receive Date: 20051215
  Receipt Date: 20050104
  Transmission Date: 20060501
  Serious: Yes (Other)
  Sender: FDA-Public Use
  Company Number: 2004115965

PATIENT
  Age: 47 Year
  Sex: Female
  Weight: 101.6057 kg

DRUGS (2)
  1. BEXTRA [Suspect]
     Indication: OSTEOARTHRITIS
     Dosage: 10 MG (10 MG,1 IN 1 D),ORAL
     Route: 048
     Dates: start: 20041001, end: 20041213
  2. QUETIAPINE FUMARATE [Concomitant]

REACTIONS (3)
  - CHEST PAIN [None]
  - DIZZINESS [None]
  - TACHYCARDIA [None]
